FAERS Safety Report 21602752 (Version 2)
Quarter: 2022Q4

REPORT INFORMATION
  Report Type: Spontaneous
  Country: AR (occurrence: AR)
  Receive Date: 20221116
  Receipt Date: 20221128
  Transmission Date: 20230112
  Serious: Yes (Other)
  Sender: FDA-Public Use
  Company Number: AR-PFIZER INC-PV202200101109

PATIENT
  Age: 61 Year
  Sex: Female

DRUGS (1)
  1. TALZENNA [Suspect]
     Active Substance: TALAZOPARIB TOSYLATE
     Dosage: 1 MG WO DAYS YES, AND ONE DAY NO

REACTIONS (3)
  - Decreased immune responsiveness [Unknown]
  - White blood cell count decreased [Unknown]
  - Off label use [Unknown]
